FAERS Safety Report 24611234 (Version 1)
Quarter: 2024Q4

REPORT INFORMATION
  Report Type: Report from Study
  Country: JP (occurrence: JP)
  Receive Date: 20241113
  Receipt Date: 20241113
  Transmission Date: 20250114
  Serious: Yes (Other)
  Sender: ALEXION PHARMACEUTICALS
  Company Number: JP-ASTRAZENECA-230049381_011820_P_1

PATIENT
  Age: 16 Year
  Weight: 43 kg

DRUGS (28)
  1. KOSELUGO [Suspect]
     Active Substance: SELUMETINIB
     Indication: Neurofibroma
     Dosage: 30 MILLIGRAM, BID
  2. KOSELUGO [Suspect]
     Active Substance: SELUMETINIB
     Dosage: 30 MILLIGRAM, BID
  3. KOSELUGO [Suspect]
     Active Substance: SELUMETINIB
     Dosage: 30 MILLIGRAM, BID
  4. KOSELUGO [Suspect]
     Active Substance: SELUMETINIB
     Dosage: 30 MILLIGRAM, BID
  5. LOXOPROFEN SODIUM [Concomitant]
     Active Substance: LOXOPROFEN SODIUM
     Indication: Pain
  6. LOXOPROFEN SODIUM [Concomitant]
     Active Substance: LOXOPROFEN SODIUM
  7. ABILIFY [Concomitant]
     Active Substance: ARIPIPRAZOLE
     Indication: Autism spectrum disorder
  8. ABILIFY [Concomitant]
     Active Substance: ARIPIPRAZOLE
  9. INTUNIV [Concomitant]
     Active Substance: GUANFACINE HYDROCHLORIDE
     Indication: Autism spectrum disorder
  10. INTUNIV [Concomitant]
     Active Substance: GUANFACINE HYDROCHLORIDE
  11. Melatobel [Concomitant]
     Indication: Sleep disorder
  12. Melatobel [Concomitant]
  13. SINGULAIR [Concomitant]
     Active Substance: MONTELUKAST SODIUM
     Indication: Asthma
  14. SINGULAIR [Concomitant]
     Active Substance: MONTELUKAST SODIUM
  15. AMBROXOL HYDROCHLORIDE [Concomitant]
     Active Substance: AMBROXOL HYDROCHLORIDE
     Indication: Asthma
  16. AMBROXOL HYDROCHLORIDE [Concomitant]
     Active Substance: AMBROXOL HYDROCHLORIDE
     Route: 065
  17. CARBOCYSTEINE [Concomitant]
     Active Substance: CARBOCYSTEINE
     Indication: Asthma
  18. CARBOCYSTEINE [Concomitant]
     Active Substance: CARBOCYSTEINE
  19. TEPRENONE [Concomitant]
     Active Substance: TEPRENONE
     Indication: Glomerulonephritis chronic
  20. TEPRENONE [Concomitant]
     Active Substance: TEPRENONE
  21. DERMOSOL G [Concomitant]
     Indication: Eczema
  22. DERMOSOL G [Concomitant]
  23. GLYCOSAMINOGLYCANS [Concomitant]
     Active Substance: GLYCOSAMINOGLYCANS
     Indication: Eczema
  24. GLYCOSAMINOGLYCANS [Concomitant]
     Active Substance: GLYCOSAMINOGLYCANS
  25. Azunol [Concomitant]
     Indication: Eczema
  26. Azunol [Concomitant]
  27. NADIFLOXACIN [Concomitant]
     Active Substance: NADIFLOXACIN
     Indication: Eczema
  28. NADIFLOXACIN [Concomitant]
     Active Substance: NADIFLOXACIN

REACTIONS (2)
  - Fall [Recovered/Resolved]
  - Humerus fracture [Recovering/Resolving]
